FAERS Safety Report 9641968 (Version 2)
Quarter: 2013Q4

REPORT INFORMATION
  Report Type: Spontaneous
  Country: IT (occurrence: IT)
  Receive Date: 20131023
  Receipt Date: 20131129
  Transmission Date: 20140711
  Serious: Yes (Other)
  Sender: FDA-Public Use
  Company Number: IT-ROCHE-1292699

PATIENT
  Age: 61 Year
  Sex: Male
  Weight: 70 kg

DRUGS (4)
  1. PEGASYS [Suspect]
     Indication: CHRONIC HEPATITIS C
     Route: 058
     Dates: start: 20130415, end: 20130824
  2. COPEGUS [Suspect]
     Indication: CHRONIC HEPATITIS C
     Route: 048
     Dates: start: 20130415, end: 20130824
  3. INCIVO [Concomitant]
     Indication: CHRONIC HEPATITIS C
     Route: 048
     Dates: start: 20130415, end: 20130708
  4. NORVASC [Concomitant]
     Indication: HYPERTENSION
     Route: 048

REACTIONS (1)
  - Ascites [Recovered/Resolved]
